FAERS Safety Report 4807740-0 (Version None)
Quarter: 2005Q4

REPORT INFORMATION
  Report Type: 
  Country: None (occurrence: None)
  Receive Date: 20051019
  Receipt Date: 20051003
  Transmission Date: 20060501
  Serious: Yes (Other)
  Sender: FDA-Public Use
  Company Number: 8011192

PATIENT
  Age: 8 Year
  Sex: Female
  Weight: 36.4 kg

DRUGS (4)
  1. KEPPRA [Suspect]
     Indication: EPILEPSY
     Dosage: 500 MG 2/D PO
     Dates: start: 20010315
  2. VALPROATE SODIUM [Concomitant]
  3. BROMIDES [Concomitant]
  4. BETAMETHASONE [Concomitant]

REACTIONS (1)
  - PRECOCIOUS PUBERTY [None]
